FAERS Safety Report 7755566-0 (Version None)
Quarter: 2011Q3

REPORT INFORMATION
  Report Type: 
  Country: None (occurrence: None)
  Receive Date: 20110914
  Receipt Date: 20110831
  Transmission Date: 20111222
  Serious: Yes (Life-Threatening, Hospitalization)
  Sender: FDA-Public Use
  Company Number: AUR-APL-2011-04886

PATIENT
  Age: 59 Year
  Sex: Female
  Weight: 58.5 kg

DRUGS (7)
  1. ALBUTEROL SULFATE [Suspect]
     Indication: PRODUCT USED FOR UNKNOWN INDICATION
     Dosage: 200 MCG (100 MCG, 2 IN 1 D), INHALATION
     Route: 055
     Dates: start: 20110701
  2. RANITIDINE HYDROCHLORIDE [Suspect]
     Indication: DYSPEPSIA
     Dosage: 300 MG, 1 IN D, ORAL
     Route: 048
     Dates: start: 20110201
  3. NICOTINE [Suspect]
     Indication: PRODUCT USED FOR UNKNOWN INDICATION
     Dosage: 15 MG, 1 D, TOPICAL
     Route: 061
     Dates: start: 20110701
  4. SYMBICORT [Suspect]
     Indication: PRODUCT USED FOR UNKNOWN INDICATION
     Dosage: INHALATION
     Route: 055
     Dates: start: 20110701
  5. CLOTRIMAZOLE [Suspect]
     Indication: FUNGAL INFECTION
     Dosage: TOPICAL
     Route: 061
     Dates: start: 20110701
  6. CLOZAPINE [Suspect]
     Indication: PRODUCT USED FOR UNKNOWN INDICATION
     Dosage: ORAL; ORAL
     Route: 048
     Dates: start: 20110707, end: 20110809
  7. CLOZAPINE [Suspect]
     Indication: PRODUCT USED FOR UNKNOWN INDICATION
     Dosage: ORAL; ORAL
     Route: 048
     Dates: start: 20110610, end: 20110627

REACTIONS (6)
  - AGRANULOCYTOSIS [None]
  - LEUKOPENIA [None]
  - NEUTROPENIC SEPSIS [None]
  - PNEUMONIA [None]
  - FUNGAL INFECTION [None]
  - BLOOD POTASSIUM DECREASED [None]
